FAERS Safety Report 16563239 (Version 3)
Quarter: 2019Q3

REPORT INFORMATION
  Report Type: Spontaneous
  Country: PT (occurrence: PT)
  Receive Date: 20190711
  Receipt Date: 20190923
  Transmission Date: 20191004
  Serious: Yes (Other)
  Sender: FDA-Public Use
  Company Number: PHHY2019PT158268

PATIENT
  Age: 14 Year
  Sex: Female

DRUGS (2)
  1. SALAZOPYRINE [Suspect]
     Active Substance: SULFASALAZINE
     Indication: PRODUCT USED FOR UNKNOWN INDICATION
     Dosage: UNK/UNK (GREATER THAN 1G/DAY)
     Route: 065
  2. ETANERCEPT [Suspect]
     Active Substance: ETANERCEPT
     Indication: PSORIATIC ARTHROPATHY
     Dosage: UNK
     Route: 065

REACTIONS (6)
  - Cell death [Unknown]
  - Polyarthritis [Unknown]
  - Leukopenia [Unknown]
  - Condition aggravated [Unknown]
  - Treatment failure [Unknown]
  - Tenosynovitis [Unknown]
